FAERS Safety Report 5563786-9 (Version None)
Quarter: 2007Q4

REPORT INFORMATION
  Report Type: 
  Country: None (occurrence: None)
  Receive Date: 20071217
  Receipt Date: 20071213
  Transmission Date: 20080405
  Serious: Yes (Death)
  Sender: FDA-Public Use
  Company Number: IN-ASTRAZENECA-2007AP07884

PATIENT
  Age: 24 Year
  Sex: Male

DRUGS (5)
  1. XYLOCAINE [Suspect]
  2. TAXIM [Suspect]
  3. TETAVAC [Suspect]
  4. TRACRIUM [Suspect]
  5. AVIL [Suspect]

REACTIONS (1)
  - DEATH [None]
